FAERS Safety Report 8283921-1 (Version None)
Quarter: 2012Q2

REPORT INFORMATION
  Report Type: 
  Country: None (occurrence: None)
  Receive Date: 20120413
  Receipt Date: 20120410
  Transmission Date: 20120825
  Serious: Yes (Other)
  Sender: FDA-Public Use
  Company Number: GB-PFIZER INC-2012089028

PATIENT
  Age: 43 Year
  Sex: Female

DRUGS (1)
  1. EFFEXOR XR [Suspect]
     Dosage: UNK
     Dates: end: 20110101

REACTIONS (4)
  - MOOD ALTERED [None]
  - DEPRESSED LEVEL OF CONSCIOUSNESS [None]
  - MUSCLE DISORDER [None]
  - BLOOD PROLACTIN INCREASED [None]
